FAERS Safety Report 8394520-5 (Version None)
Quarter: 2012Q2

REPORT INFORMATION
  Report Type: 
  Country: None (occurrence: None)
  Receive Date: 20120530
  Receipt Date: 20120517
  Transmission Date: 20120825
  Serious: Yes (Hospitalization)
  Sender: FDA-Public Use
  Company Number: US-ELI_LILLY_AND_COMPANY-US201202005977

PATIENT
  Sex: Female

DRUGS (38)
  1. ZOFRAN [Concomitant]
     Indication: NAUSEA
     Dosage: 8 MG, EVERY 6 HRS
  2. LOVENOX [Concomitant]
     Dosage: 100 MG, QD
  3. CALCIUM WITH VITAMIN D [Concomitant]
     Dosage: 600 MG, TID
  4. MIRALAX [Concomitant]
     Dosage: 17 MG, QD
  5. BENEFIBER [Concomitant]
     Dosage: 17 MG, QD
  6. VALIUM [Concomitant]
     Dosage: 5 MG, TID
  7. FORTEO [Suspect]
     Indication: OSTEOPOROSIS
     Dosage: 20 UG, QD
     Dates: start: 20111101
  8. FORTEO [Suspect]
     Dosage: 20 UG, QD
  9. PLAQUINOL TAB [Concomitant]
     Dosage: 200 MG, BID
  10. ZANTAC [Concomitant]
     Dosage: 150 MG, TID
  11. MORPHINE SULFATE [Concomitant]
     Indication: PAIN
  12. SOMA [Concomitant]
     Dosage: 350 MG, TID
  13. BACLOFEN [Concomitant]
     Dosage: 10 MG, TID
  14. CLOBETASOL PROPIONATE [Concomitant]
     Indication: ECZEMA
  15. PROAIR HFA [Concomitant]
     Dosage: UNK, BID
  16. LEVOTHYROXINE SODIUM [Concomitant]
     Dosage: 25 UG, QD
  17. HUMALOG [Concomitant]
  18. ADVAIR DISKUS 100/50 [Concomitant]
     Dosage: UNK, BID
  19. ASPIRIN [Concomitant]
     Dosage: 81 MG, QD
  20. DEXAMETHASONE [Concomitant]
  21. POTASSIUM CHLORIDE [Concomitant]
     Dosage: 40 MEQ, TID
  22. METOLAZONE [Concomitant]
     Dosage: 5 MG, UNK
  23. DIFLUCAN [Concomitant]
     Indication: CANDIDIASIS
     Dosage: 150 MG, QD
  24. REGLAN [Concomitant]
     Dosage: 10 MG, QID
  25. OMEPRAZOLE [Concomitant]
     Dosage: UNK, QD
  26. VERAPAMIL HCL [Concomitant]
     Dosage: 120 MG, QD
  27. ALDACTONE [Concomitant]
     Dosage: 50 MG, BID
  28. FIORICET [Concomitant]
     Indication: MIGRAINE
     Dosage: UNK, QID
  29. PHENERGAN [Concomitant]
     Indication: NAUSEA
     Dosage: UNK, PRN
  30. LANTUS [Concomitant]
     Dosage: 26 U, QD
  31. AMITRIPTYLINE HCL [Concomitant]
     Dosage: 25 MG, OTHER
  32. IBUPROFEN [Concomitant]
     Dosage: 600 MG, TID
  33. MS CONTIN [Concomitant]
     Dosage: 60 MG, TID
  34. GABAPENTIN [Concomitant]
     Dosage: 400 MG, QID
  35. BACTROBAN [Concomitant]
     Indication: NASAL DRYNESS
  36. COUMADIN [Concomitant]
  37. LASIX [Concomitant]
     Dosage: 40 MG, TID
  38. SENNA-MINT WAF [Concomitant]
     Dosage: UNK, BID

REACTIONS (7)
  - OXYGEN SATURATION DECREASED [None]
  - MUSCLE SPASMS [None]
  - APHONIA [None]
  - OPEN WOUND [None]
  - BONE PAIN [None]
  - BACK DISORDER [None]
  - SYSTEMIC LUPUS ERYTHEMATOSUS [None]
